FAERS Safety Report 11183284 (Version 1)
Quarter: 2015Q2

REPORT INFORMATION
  Report Type: Spontaneous
  Country: JP (occurrence: JP)
  Receive Date: 20150611
  Receipt Date: 20150611
  Transmission Date: 20150821
  Serious: Yes (Other)
  Sender: FDA-Public Use
  Company Number: JP-BRISTOL-MYERS SQUIBB COMPANY-BMS-2015-038808

PATIENT
  Age: 73 Year
  Sex: Female

DRUGS (1)
  1. KENACORT-A [Suspect]
     Active Substance: TRIAMCINOLONE
     Indication: RETINAL VEIN OCCLUSION
     Dosage: 30 MG, TOTAL
     Route: 050

REACTIONS (3)
  - Plastic surgery [Unknown]
  - Eyelid ptosis [Recovered/Resolved]
  - Off label use [Unknown]
